FAERS Safety Report 23334040 (Version 1)
Quarter: 2023Q4

REPORT INFORMATION
  Report Type: Report from Study
  Country: GB (occurrence: GB)
  Receive Date: 20231223
  Receipt Date: 20231223
  Transmission Date: 20240110
  Serious: Yes (Hospitalization)
  Sender: FDA-Public Use
  Company Number: GB-002147023-NVSC2022GB264358

PATIENT
  Age: 34 Year
  Sex: Male

DRUGS (1)
  1. KESIMPTA [Suspect]
     Active Substance: OFATUMUMAB
     Indication: Multiple sclerosis
     Dosage: 20 MG, OTHER (WEEK O, WEEK 1, WEEK 2, WEEK 4 THEN MONTHLY (THIS WAS WEEK 0 + 1))
     Route: 058
     Dates: start: 20221110

REACTIONS (11)
  - Pain in jaw [Unknown]
  - Influenza like illness [Recovering/Resolving]
  - Oropharyngeal pain [Recovering/Resolving]
  - Aphonia [Recovering/Resolving]
  - Cough [Recovering/Resolving]
  - Headache [Recovering/Resolving]
  - Nasopharyngitis [Unknown]
  - Photophobia [Unknown]
  - Eye pain [Unknown]
  - Hypoaesthesia [Unknown]
  - Infection [Unknown]

NARRATIVE: CASE EVENT DATE: 20221111
